FAERS Safety Report 5500259-3 (Version None)
Quarter: 2007Q4

REPORT INFORMATION
  Report Type: 
  Country: None (occurrence: None)
  Receive Date: 20071029
  Receipt Date: 20071022
  Transmission Date: 20080405
  Serious: Yes (Other)
  Sender: FDA-Public Use
  Company Number: FR-ELI_LILLY_AND_COMPANY-FR200710005439

PATIENT
  Age: 64 Year
  Sex: Female

DRUGS (1)
  1. ZYPREXA [Suspect]
     Indication: PSYCHOTIC DISORDER
     Dosage: 5 MG, DAILY (1/D)
     Route: 048
     Dates: start: 20071012, end: 20071016

REACTIONS (2)
  - ELECTROCARDIOGRAM P WAVE BIPHASIC [None]
  - ELECTROCARDIOGRAM T WAVE INVERSION [None]
